FAERS Safety Report 12360089 (Version 3)
Quarter: 2017Q1

REPORT INFORMATION
  Report Type: Spontaneous
  Country: US (occurrence: US)
  Receive Date: 20160512
  Receipt Date: 20170103
  Transmission Date: 20170428
  Serious: Yes (Hospitalization)
  Sender: FDA-Public Use
  Company Number: US-RELYPSA-RLY2016000544

PATIENT
  Age: 74 Year
  Sex: Male

DRUGS (1)
  1. VELTASSA [Suspect]
     Active Substance: PATIROMER
     Indication: HYPERKALAEMIA
     Dosage: 8.4 G, QD
     Route: 065
     Dates: start: 20160331, end: 20160417

REACTIONS (2)
  - Constipation [Unknown]
  - Heart valve replacement [Recovered/Resolved]

NARRATIVE: CASE EVENT DATE: 2016
